FAERS Safety Report 4916539-6 (Version None)
Quarter: 2006Q1

REPORT INFORMATION
  Report Type: 
  Country: None (occurrence: None)
  Receive Date: 20060220
  Receipt Date: 20060217
  Transmission Date: 20060701
  Serious: Yes (Death)
  Sender: FDA-Public Use
  Company Number: DE-SP-2006-00382

PATIENT

DRUGS (1)
  1. IMMUCYST [Suspect]

REACTIONS (1)
  - SEPTIC SHOCK [None]
